FAERS Safety Report 14011415 (Version 1)
Quarter: 2017Q3

REPORT INFORMATION
  Report Type: Spontaneous
  Country: US (occurrence: US)
  Receive Date: 20170926
  Receipt Date: 20170926
  Transmission Date: 20171128
  Serious: Yes (Other)
  Sender: FDA-Public Use
  Company Number: None

PATIENT
  Sex: Female
  Weight: 57.6 kg

DRUGS (18)
  1. IBRANCE [Suspect]
     Active Substance: PALBOCICLIB
     Indication: BREAST CANCER
     Route: 048
     Dates: start: 20161118, end: 20170925
  2. METOPROLOL TARTRATE. [Concomitant]
     Active Substance: METOPROLOL TARTRATE
  3. FASLODEX [Concomitant]
     Active Substance: FULVESTRANT
  4. FLOVENT HFA [Concomitant]
     Active Substance: FLUTICASONE PROPIONATE
  5. FELODIPINE. [Concomitant]
     Active Substance: FELODIPINE
  6. MIRALAX [Concomitant]
     Active Substance: POLYETHYLENE GLYCOL 3350
  7. DILTIAZEM. [Concomitant]
     Active Substance: DILTIAZEM
  8. TYLENOL [Concomitant]
     Active Substance: ACETAMINOPHEN
  9. ATENOLOL. [Concomitant]
     Active Substance: ATENOLOL
  10. NOVOLOG [Concomitant]
     Active Substance: INSULIN ASPART
  11. FUROSEMIDE. [Concomitant]
     Active Substance: FUROSEMIDE
  12. LOVASTATIN. [Concomitant]
     Active Substance: LOVASTATIN
  13. FLONASE [Concomitant]
     Active Substance: FLUTICASONE PROPIONATE
  14. AMLACTIN ULTRA [Concomitant]
  15. OMEPRAZOLE. [Concomitant]
     Active Substance: OMEPRAZOLE
  16. MORPHINE SULFATE. [Concomitant]
     Active Substance: MORPHINE SULFATE
  17. LIDOCAINE. [Concomitant]
     Active Substance: LIDOCAINE
  18. PROVENTIL HFA [Concomitant]
     Active Substance: ALBUTEROL SULFATE

REACTIONS (1)
  - Disease progression [None]
